FAERS Safety Report 23410083 (Version 3)
Quarter: 2024Q1

REPORT INFORMATION
  Report Type: Report from Study
  Country: CA (occurrence: CA)
  Receive Date: 20240117
  Receipt Date: 20240207
  Transmission Date: 20240410
  Serious: Yes (Other)
  Sender: FDA-Public Use
  Company Number: CA-002147023-NVSC2024CA010075

PATIENT
  Age: 68 Year
  Sex: Female

DRUGS (1)
  1. COSENTYX [Suspect]
     Active Substance: SECUKINUMAB
     Indication: Psoriasis
     Dosage: 300 MG, QMO
     Route: 058
     Dates: start: 20230120

REACTIONS (7)
  - Lower respiratory tract infection [Unknown]
  - Productive cough [Unknown]
  - Cough [Unknown]
  - Lower respiratory tract congestion [Unknown]
  - Blister [Recovering/Resolving]
  - Infection [Recovered/Resolved]
  - Oral herpes [Unknown]
